FAERS Safety Report 23533213 (Version 1)
Quarter: 2024Q1

REPORT INFORMATION
  Report Type: Spontaneous
  Country: ZA (occurrence: ZA)
  Receive Date: 20240216
  Receipt Date: 20240216
  Transmission Date: 20240410
  Serious: Yes (Other)
  Sender: FDA-Public Use
  Company Number: ZA-SA-SAC20240213000521

PATIENT
  Sex: Female

DRUGS (3)
  1. LEFLUNOMIDE [Suspect]
     Active Substance: LEFLUNOMIDE
     Dosage: 20 MG, QD
     Dates: start: 202201
  2. METHOTREXATE [Suspect]
     Active Substance: METHOTREXATE
     Dosage: 20 MG, QW
     Dates: start: 202201, end: 202205
  3. SULFASALAZINE [Suspect]
     Active Substance: SULFASALAZINE
     Dosage: 1 G, BID
     Dates: start: 202201

REACTIONS (9)
  - Type 2 diabetes mellitus [Unknown]
  - Inflammatory pain [Unknown]
  - Back pain [Unknown]
  - C-reactive protein increased [Unknown]
  - Enthesopathy [Unknown]
  - Fibromyalgia [Unknown]
  - Dyslipidaemia [Unknown]
  - Arthritis [Unknown]
  - Hypertension [Unknown]
